FAERS Safety Report 17905303 (Version 2)
Quarter: 2020Q2

REPORT INFORMATION
  Report Type: Report from Study
  Country: US (occurrence: US)
  Receive Date: 20200616
  Receipt Date: 20200619
  Transmission Date: 20200714
  Serious: Yes (Death, Life-Threatening, Hospitalization, Disabling, Other)
  Sender: FDA-Public Use
  Company Number: US-GILEAD-2020-0455014

PATIENT
  Age: 71 Year
  Sex: Male
  Weight: 93 kg

DRUGS (11)
  1. FLUDARABINE [Suspect]
     Active Substance: FLUDARABINE PHOSPHATE
     Dosage: 65
     Route: 042
     Dates: start: 20200311, end: 20200311
  2. CYCLOPHOSPHAMIDE. [Suspect]
     Active Substance: CYCLOPHOSPHAMIDE
     Dosage: 1,075
     Route: 042
     Dates: start: 20200314, end: 20200314
  3. FLUDARABINE [Suspect]
     Active Substance: FLUDARABINE PHOSPHATE
     Indication: BONE MARROW CONDITIONING REGIMEN
     Dosage: 30
     Route: 042
     Dates: start: 20200314, end: 20200314
  4. AXICABTAGENE CILOLEUCEL [Suspect]
     Active Substance: AXICABTAGENE CILOLEUCEL
     Indication: B-CELL LYMPHOMA
     Dosage: 68
     Route: 042
     Dates: start: 20200317, end: 20200317
  5. CYCLOPHOSPHAMIDE. [Suspect]
     Active Substance: CYCLOPHOSPHAMIDE
     Indication: BONE MARROW CONDITIONING REGIMEN
     Dosage: 500
     Route: 042
     Dates: start: 20200311, end: 20200311
  6. MESNA. [Suspect]
     Active Substance: MESNA
     Indication: PROPHYLAXIS
     Dosage: 500
     Route: 042
     Dates: start: 20200311, end: 20200312
  7. FLUDARABINE [Suspect]
     Active Substance: FLUDARABINE PHOSPHATE
     Dosage: 30
     Route: 042
     Dates: start: 20200312, end: 20200313
  8. RITUXIMAB. [Suspect]
     Active Substance: RITUXIMAB
     Indication: CHEMOTHERAPY
     Dosage: 806
     Route: 042
     Dates: start: 20200311, end: 20200311
  9. RITUXIMAB. [Suspect]
     Active Substance: RITUXIMAB
     Dosage: 743
     Route: 042
     Dates: start: 20200407, end: 20200407
  10. MESNA. [Suspect]
     Active Substance: MESNA
     Dosage: 500
     Route: 042
     Dates: start: 20200314, end: 20200315
  11. CYCLOPHOSPHAMIDE. [Suspect]
     Active Substance: CYCLOPHOSPHAMIDE
     Dosage: 500
     Route: 042
     Dates: start: 20200312, end: 20200312

REACTIONS (15)
  - Hypokalaemia [Recovered/Resolved]
  - Hypoxia [Not Recovered/Not Resolved]
  - Neurotoxicity [Recovered/Resolved]
  - Pain [Recovered/Resolved]
  - Decreased appetite [Not Recovered/Not Resolved]
  - Hypoxia [Not Recovered/Not Resolved]
  - Neurotoxicity [Recovered/Resolved]
  - Hypoxia [Recovered/Resolved]
  - Embolism [Not Recovered/Not Resolved]
  - Depression [Not Recovered/Not Resolved]
  - Pain [Recovered/Resolved]
  - Hypotension [Recovered/Resolved]
  - Sepsis [Recovered/Resolved]
  - Pleural effusion [Not Recovered/Not Resolved]
  - B-cell lymphoma [Fatal]

NARRATIVE: CASE EVENT DATE: 20200312
